FAERS Safety Report 26122408 (Version 2)
Quarter: 2025Q4

REPORT INFORMATION
  Report Type: Spontaneous
  Country: CA (occurrence: CA)
  Receive Date: 20251204
  Receipt Date: 20251231
  Transmission Date: 20260119
  Serious: No
  Sender: CSL BEHRING
  Company Number: CA-BEH-2025227508

PATIENT
  Sex: Male

DRUGS (4)
  1. ZEMAIRA [Suspect]
     Active Substance: .ALPHA.1-PROTEINASE INHIBITOR HUMAN
     Indication: Alpha-1 antitrypsin deficiency
     Dosage: 5000.0 MILLIGRAM, 1 EVERY 1 WEEKS
     Route: 042
  2. ZEMAIRA [Suspect]
     Active Substance: .ALPHA.1-PROTEINASE INHIBITOR HUMAN
     Dosage: 5000.0 MILLIGRAM, 1 EVERY 1 WEEKS
     Route: 042
  3. ZEMAIRA [Suspect]
     Active Substance: .ALPHA.1-PROTEINASE INHIBITOR HUMAN
     Dosage: 5000.0 MILLIGRAM, 1 EVERY 1 WEEKS
     Route: 042
     Dates: start: 2020, end: 2020
  4. PROLASTIN [Suspect]
     Active Substance: .ALPHA.1-PROTEINASE INHIBITOR HUMAN
     Dosage: UNK
     Route: 065

REACTIONS (1)
  - Alpha-1 antitrypsin deficiency [Fatal]
